FAERS Safety Report 14004892 (Version 1)
Quarter: 2017Q3

REPORT INFORMATION
  Report Type: Spontaneous
  Country: US (occurrence: US)
  Receive Date: 20170922
  Receipt Date: 20170922
  Transmission Date: 20171128
  Serious: No
  Sender: FDA-Public Use
  Company Number: US-PFIZER INC-2017405681

PATIENT
  Age: 73 Year
  Sex: Female
  Weight: 85.27 kg

DRUGS (1)
  1. IBRANCE [Suspect]
     Active Substance: PALBOCICLIB
     Indication: BREAST CANCER METASTATIC
     Dosage: 125 MG, CYCLIC [DAYS 1-21 Q28 DAYS]
     Route: 048
     Dates: start: 20170904

REACTIONS (4)
  - Oral pain [Unknown]
  - Tooth disorder [Unknown]
  - Gingival pain [Unknown]
  - Pain in jaw [Unknown]

NARRATIVE: CASE EVENT DATE: 20170917
